FAERS Safety Report 15408993 (Version 6)
Quarter: 2019Q1

REPORT INFORMATION
  Report Type: Spontaneous
  Country: US (occurrence: US)
  Receive Date: 20180920
  Receipt Date: 20190116
  Transmission Date: 20190417
  Serious: Yes (Other)
  Sender: FDA-Public Use
  Company Number: US-CLOVIS ONCOLOGY-CLO-2018-001250

PATIENT
  Age: 58 Year
  Sex: Female

DRUGS (3)
  1. SLO-MAG [Concomitant]
     Indication: HYPOMAGNESAEMIA
     Dosage: UNK
  2. RUBRACA [Suspect]
     Active Substance: RUCAPARIB CAMSYLATE
     Indication: OVARIAN CANCER
     Dosage: 600 MG, BID
     Route: 048
     Dates: start: 20180901, end: 201811
  3. LEVOTHYROXINE. [Concomitant]
     Active Substance: LEVOTHYROXINE
     Indication: HYPOTHYROIDISM
     Dosage: UNK

REACTIONS (17)
  - Diarrhoea [Recovering/Resolving]
  - Nausea [Not Recovered/Not Resolved]
  - Wound dehiscence [Not Recovered/Not Resolved]
  - Thinking abnormal [Recovering/Resolving]
  - Tumour marker increased [Unknown]
  - Renal function test abnormal [Unknown]
  - Neoplasm [Unknown]
  - Wound secretion [Not Recovered/Not Resolved]
  - Pruritus [Recovered/Resolved]
  - Product dose omission [Unknown]
  - Carbohydrate antigen 125 increased [Unknown]
  - Vomiting [Recovered/Resolved]
  - Postoperative wound infection [Recovered/Resolved]
  - Ascites [Unknown]
  - Amnesia [Recovering/Resolving]
  - Dysgeusia [Not Recovered/Not Resolved]
  - Gastrooesophageal reflux disease [Recovering/Resolving]

NARRATIVE: CASE EVENT DATE: 2018
